FAERS Safety Report 14355078 (Version 3)
Quarter: 2019Q1

REPORT INFORMATION
  Report Type: Spontaneous
  Country: US (occurrence: US)
  Receive Date: 20180105
  Receipt Date: 20190130
  Transmission Date: 20190417
  Serious: Yes (Hospitalization, Other)
  Sender: FDA-Public Use
  Company Number: US-PFIZER INC-2018003318

PATIENT
  Age: 66 Year
  Sex: Male
  Weight: 84 kg

DRUGS (1)
  1. REVATIO [Suspect]
     Active Substance: SILDENAFIL CITRATE
     Indication: CARDIAC DISORDER
     Dosage: 20MG,TABLET, TWICE A DAY
     Route: 048

REACTIONS (3)
  - Product use in unapproved indication [Unknown]
  - Arrhythmia [Unknown]
  - Product use issue [Unknown]

NARRATIVE: CASE EVENT DATE: 20171227
